FAERS Safety Report 11661062 (Version 3)
Quarter: 2015Q4

REPORT INFORMATION
  Report Type: Report from Study
  Country: TH (occurrence: TH)
  Receive Date: 20151026
  Receipt Date: 20151110
  Transmission Date: 20160304
  Serious: Yes (Death)
  Sender: FDA-Public Use
  Company Number: TH-PFIZER INC-2015355133

PATIENT
  Age: 56 Year
  Sex: Female
  Weight: 40 kg

DRUGS (10)
  1. NORFLOXACIN [Concomitant]
     Active Substance: NORFLOXACIN
     Indication: ENTERITIS
     Dosage: 400 MG, 2X/DAY
     Route: 048
     Dates: start: 20151015
  2. OMEPRAZOLE. [Concomitant]
     Active Substance: OMEPRAZOLE
     Dosage: 20 MG, DAILY
  3. ELTROXIN [Concomitant]
     Active Substance: LEVOTHYROXINE
     Dosage: 1/2 TABLET OF 100 ?G DAILY
     Route: 048
     Dates: start: 20150420
  4. BERAPROST [Concomitant]
     Active Substance: BERAPROST
     Dosage: 20 ?G, 3X/DAY
     Route: 048
     Dates: start: 20150616
  5. PREDNISOLONE. [Concomitant]
     Active Substance: PREDNISOLONE
     Dosage: UNK
     Dates: start: 201409
  6. CYPROHEPTADINE. [Concomitant]
     Active Substance: CYPROHEPTADINE
     Dosage: 4 MG, 1X/DAY
  7. LASIX [Concomitant]
     Active Substance: FUROSEMIDE
     Dosage: 40MG, DAILY
     Route: 048
     Dates: start: 20150427
  8. PREDNISOLONE. [Concomitant]
     Active Substance: PREDNISOLONE
     Dosage: HALF TABLET OF 5 MG DAILY
     Route: 048
     Dates: start: 20150420
  9. SILDENAFIL CITRATE. [Suspect]
     Active Substance: SILDENAFIL CITRATE
     Indication: PULMONARY HYPERTENSION
     Dosage: 5 MG, 3X/DAY
     Route: 048
     Dates: start: 20150928, end: 20151015
  10. ALDACTONE [Concomitant]
     Active Substance: SPIRONOLACTONE
     Dosage: 25 MG, DAILY
     Route: 048
     Dates: start: 20150522

REACTIONS (1)
  - Diarrhoea infectious [Fatal]

NARRATIVE: CASE EVENT DATE: 20151015
